FAERS Safety Report 9898996 (Version 2)
Quarter: 2014Q1

REPORT INFORMATION
  Report Type: Spontaneous
  Country: US (occurrence: US)
  Receive Date: 20140214
  Receipt Date: 20140214
  Transmission Date: 20141002
  Serious: Yes (Hospitalization)
  Sender: FDA-Public Use
  Company Number: US-JNJFOC-20140114015

PATIENT
  Age: 58 Year
  Sex: Female
  Weight: 99.34 kg

DRUGS (8)
  1. INVOKANA [Suspect]
     Indication: TYPE 2 DIABETES MELLITUS
     Route: 048
     Dates: start: 20140110, end: 20140116
  2. BYETTA [Concomitant]
     Route: 058
     Dates: start: 20121218, end: 20140116
  3. INSULIN [Concomitant]
  4. LANTUS [Concomitant]
     Route: 058
  5. METFORMIN [Concomitant]
     Route: 048
  6. L-THYROXINE [Concomitant]
     Route: 048
  7. LISINOPRIL [Concomitant]
     Route: 048
  8. FENOFIBRATE [Concomitant]
     Route: 048

REACTIONS (5)
  - Pancreatitis [Recovered/Resolved]
  - Renal failure acute [Recovered/Resolved]
  - Hepatic steatosis [Recovered/Resolved]
  - Anaemia [Recovered/Resolved]
  - Hepatomegaly [Recovered/Resolved]
